FAERS Safety Report 7682836 (Version 3)
Quarter: 2014Q1

REPORT INFORMATION
  Report Type: Report from Study
  Country: US (occurrence: US)
  Receive Date: 20101124
  Receipt Date: 20140331
  Transmission Date: 20141002
  Serious: Yes (Hospitalization, Other)
  Sender: FDA-Public Use
  Company Number: US-ALEXION PHARMACEUTICALS INC.-A201001030

PATIENT
  Sex: 0

DRUGS (38)
  1. HYDROCORTISONE [Concomitant]
     Dosage: UNK
     Route: 061
  2. CYMBALTA [Concomitant]
     Dosage: 90 MG, QD
     Route: 048
  3. NITROFURANTOIN [Concomitant]
     Dosage: 100 MG, QD
     Route: 048
  4. ACIDOPHILUS [Concomitant]
     Dosage: 1 CAPSULE, QD
     Route: 048
  5. ACETAMINOPHEN [Concomitant]
     Dosage: 1300 MG, TID
     Route: 048
  6. VESICARE                           /01735901/ [Concomitant]
     Dosage: 5 MG, QD
     Route: 048
  7. POTASSIUM CITRATE [Concomitant]
     Dosage: 1080 MG, BID
     Route: 048
  8. OMEGA 3 FISH OIL [Concomitant]
     Dosage: 4 G, QD
     Route: 048
  9. GABAPENTIN [Concomitant]
     Dosage: 900 MG, QD
     Route: 048
  10. LISINOPRIL [Concomitant]
     Dosage: UNK
     Route: 048
     Dates: end: 201010
  11. NABUMETONE [Concomitant]
     Dosage: 1500 MG, QD
     Route: 048
  12. HYDROCORTISONE [Concomitant]
     Dosage: 20 MG, QAM/ 10MG, Q 2PM
     Route: 048
  13. ENOXAPARIN SODIUM [Concomitant]
     Dosage: UNK, QD
     Route: 058
  14. MICONAZOLE [Concomitant]
     Indication: FUNGAL SKIN INFECTION
     Dosage: UNK
  15. SERTRALINE HYDROCHLORIDE [Concomitant]
     Dosage: 50 MG, QD
     Route: 048
  16. MULTIVITAMINS PLUS IRON [Concomitant]
     Dosage: 1 TAB, QD
     Route: 048
  17. VITAMIN B6 [Concomitant]
     Dosage: 50 MG, QD
     Route: 048
  18. OMEPRAZOLE [Concomitant]
     Dosage: 20 MG, QD
     Route: 048
  19. DOCUSATE SODIUM [Concomitant]
     Dosage: 100 MG, QD
     Route: 048
  20. SOLIRIS [Suspect]
     Indication: PAROXYSMAL NOCTURNAL HAEMOGLOBINURIA
     Dosage: 900 MG, Q2W
     Route: 042
     Dates: start: 200708
  21. LIDOCAINE HCL                      /00033402/ [Concomitant]
     Dosage: UNK
     Route: 061
  22. FLUTICASONE PROPIONATE [Concomitant]
     Dosage: 2 SPRAYS IN EACH NOSTRIL QD
     Route: 045
  23. LIDOCAINE [Concomitant]
     Dosage: UNK
     Route: 062
  24. VITAMIN C                          /00008001/ [Concomitant]
     Dosage: 500 MG, BID
     Route: 048
  25. PREMARIN                           /00073001/ [Concomitant]
     Route: 067
  26. LAMICTAL [Concomitant]
     Dosage: 50 MG, QD
     Route: 048
  27. VITAMIN B12                        /00056201/ [Concomitant]
     Dosage: 1 TAB, QD
     Route: 048
  28. BUSPIRONE HYDROCHLORIDE [Concomitant]
     Dosage: 20 MG, QD
     Route: 048
  29. CLARITIN                           /00917501/ [Concomitant]
     Dosage: 1 CAPSULE, PRN
     Route: 048
  30. AMITRIPTYLINE HYDROCHLORIDE [Concomitant]
     Dosage: 10 MG, QD
     Route: 048
  31. ASPIRIN [Concomitant]
     Dosage: 81 MG, QOD
     Route: 048
  32. FERROUS GLUCONATE [Concomitant]
     Dosage: 325 MG, TID
     Route: 048
  33. FOLIC ACID [Concomitant]
     Dosage: 2 MG, QD
     Route: 048
  34. AQUAPHOR                           /00298701/ [Concomitant]
     Dosage: APPLY SPARINGLY, QD
     Route: 061
  35. CALCIUM CITRATE W/VITAMIN D NOS [Concomitant]
     Dosage: 2 TABS, BID
     Route: 048
  36. PROMETHAZINE HYDROCHLORIDE [Concomitant]
     Dosage: 25 MG, Q4-6 HRS PRN
     Route: 048
  37. HYDROXYZINE HYDROCHLORIDE [Concomitant]
     Dosage: 25 MG, HS PRN
     Route: 048
  38. SENNA PLUS                         /00142201/ [Concomitant]
     Dosage: 1 TAB, DAILY PRN
     Route: 048

REACTIONS (10)
  - Renal failure acute [Recovering/Resolving]
  - Pyelonephritis [Recovering/Resolving]
  - Pyrexia [Recovered/Resolved]
  - Nephrolithiasis [Recovered/Resolved]
  - Dyspnoea [Recovered/Resolved]
  - Haemolytic anaemia [Recovered/Resolved]
  - Cardiomyopathy [Recovering/Resolving]
  - Depression [Recovering/Resolving]
  - Fatigue [Unknown]
  - Muscle spasms [Unknown]
